APPROVED DRUG PRODUCT: ZONEGRAN
Active Ingredient: ZONISAMIDE
Strength: 50MG **Federal Register determination that product was not discontinued or withdrawn for safety or effectiveness reasons**
Dosage Form/Route: CAPSULE;ORAL
Application: N020789 | Product #002
Applicant: ADVANZ PHARMA (US) CORP
Approved: Aug 22, 2003 | RLD: Yes | RS: No | Type: DISCN